FAERS Safety Report 19172048 (Version 1)
Quarter: 2021Q2

REPORT INFORMATION
  Report Type: Spontaneous
  Country: CA (occurrence: CA)
  Receive Date: 20210423
  Receipt Date: 20210423
  Transmission Date: 20210717
  Serious: Yes (Hospitalization)
  Sender: FDA-Public Use
  Company Number: CA-JNJFOC-20210444030

PATIENT
  Age: 37 Year
  Sex: Female
  Weight: 79 kg

DRUGS (2)
  1. AZATHIOPRINE. [Concomitant]
     Active Substance: AZATHIOPRINE
  2. INFLIXIMAB, RECOMBINANT [Suspect]
     Active Substance: INFLIXIMAB
     Indication: CROHN^S DISEASE
     Route: 042

REACTIONS (9)
  - Intestinal obstruction [Unknown]
  - Product use issue [Unknown]
  - Weight fluctuation [Unknown]
  - Inappropriate schedule of product administration [Unknown]
  - Maternal exposure during pregnancy [Unknown]
  - Condition aggravated [Unknown]
  - Fatigue [Unknown]
  - Intentional product use issue [Unknown]
  - Off label use [Unknown]
